FAERS Safety Report 16348160 (Version 2)
Quarter: 2019Q3

REPORT INFORMATION
  Report Type: Spontaneous
  Country: US (occurrence: US)
  Receive Date: 20190523
  Receipt Date: 20190724
  Transmission Date: 20191004
  Serious: No
  Sender: FDA-Public Use
  Company Number: US-IGSA-SR10008228

PATIENT
  Age: 3 Month
  Sex: Male

DRUGS (1)
  1. HUMAN NORMAL IMMUNOGLOBULIN (IV) [Suspect]
     Active Substance: HUMAN IMMUNOGLOBULIN G
     Indication: KAWASAKI^S DISEASE
     Dosage: 130 G, UNK
     Dates: start: 20160310

REACTIONS (3)
  - Oedema peripheral [Unknown]
  - Conjunctivitis [Unknown]
  - Rash [Unknown]
